FAERS Safety Report 9925961 (Version 1)
Quarter: 2014Q1

REPORT INFORMATION
  Report Type: Spontaneous
  Country: US (occurrence: US)
  Receive Date: 20140226
  Receipt Date: 20140226
  Transmission Date: 20141002
  Serious: No
  Sender: FDA-Public Use
  Company Number: US-BRACCO-009788

PATIENT
  Sex: Female

DRUGS (1)
  1. ISOVUE 300 [Suspect]
     Indication: EPIDURAL INJECTION
     Route: 008
     Dates: start: 20130812, end: 20130812

REACTIONS (1)
  - Wrong drug administered [Unknown]
